FAERS Safety Report 8509533-X (Version None)
Quarter: 2012Q3

REPORT INFORMATION
  Report Type: 
  Country: None (occurrence: None)
  Receive Date: 20120713
  Receipt Date: 20120709
  Transmission Date: 20120928
  Serious: Yes (Hospitalization, Disabling, Other)
  Sender: FDA-Public Use
  Company Number: US-009507513-1202USA03877

PATIENT

DRUGS (14)
  1. CELEBREX [Concomitant]
     Indication: ARTHRITIS
     Dosage: TO PRESENT
     Dates: start: 20050101
  2. FOSAMAX [Suspect]
     Dosage: UNK
     Dates: start: 20110307
  3. VITAMIN D (UNSPECIFIED) [Concomitant]
     Dosage: TO PRESENT
     Dates: start: 19950101
  4. FOSAMAX [Suspect]
     Dosage: 70 MG, QW
     Route: 048
     Dates: start: 20020404, end: 20080102
  5. METICORTEN [Concomitant]
     Indication: ARTHRITIS
     Dosage: 1950-PRESENT
  6. FOSAMAX [Suspect]
     Route: 048
  7. FOSAMAX [Suspect]
     Indication: OSTEOPOROSIS
     Dosage: 10 MG, QD
     Route: 048
     Dates: start: 20000104, end: 20080101
  8. CALCIUM (UNSPECIFIED) [Concomitant]
     Dosage: TO PRESENT
     Dates: start: 19950101
  9. CORTICOSTEROIDS (UNSPECIFIED) [Concomitant]
     Dosage: 1951-PRESENT
  10. CYTOTEC [Concomitant]
  11. FOSAMAX [Suspect]
     Dosage: 70 MG, QW
     Route: 048
     Dates: start: 20080303, end: 20100628
  12. CORTISONE ACETATE [Concomitant]
     Indication: ARTHRITIS
     Dosage: 1950-PRESENT
  13. ALENDRONATE SODIUM [Suspect]
     Indication: OSTEOPOROSIS
     Dosage: 70 MG, QW
     Dates: start: 20080301, end: 20100601
  14. DIOVAN [Concomitant]
     Indication: HYPERTENSION

REACTIONS (39)
  - CELLULITIS [None]
  - AORTIC VALVE INCOMPETENCE [None]
  - MITRAL VALVE INCOMPETENCE [None]
  - NERVE INJURY [None]
  - FRACTURE [None]
  - BLOOD UREA INCREASED [None]
  - AORTIC DILATATION [None]
  - INFECTION [None]
  - NEPHROLITHIASIS [None]
  - OEDEMA PERIPHERAL [None]
  - OSTEOARTHRITIS [None]
  - VENOUS INSUFFICIENCY [None]
  - PYREXIA [None]
  - VASCULAR CALCIFICATION [None]
  - ARTHRALGIA [None]
  - ULCER [None]
  - HYPOTHYROIDISM [None]
  - MASS [None]
  - COLITIS [None]
  - CHOLELITHIASIS [None]
  - JUVENILE ARTHRITIS [None]
  - CONFUSIONAL STATE [None]
  - HAEMORRHAGIC ANAEMIA [None]
  - FEMUR FRACTURE [None]
  - EPISTAXIS [None]
  - CALCIUM DEFICIENCY [None]
  - GASTROINTESTINAL HAEMORRHAGE [None]
  - SKIN ULCER [None]
  - ARTHROPATHY [None]
  - PROSTATE CANCER [None]
  - CARDIAC DISORDER [None]
  - EXCORIATION [None]
  - GAIT DISTURBANCE [None]
  - INGUINAL HERNIA [None]
  - ANKLE FRACTURE [None]
  - HAEMORRHOIDS [None]
  - DIARRHOEA [None]
  - CARDIAC MURMUR [None]
  - MYOCARDIAL INFARCTION [None]
